FAERS Safety Report 18709500 (Version 1)
Quarter: 2021Q1

REPORT INFORMATION
  Report Type: Spontaneous
  Country: FR (occurrence: FR)
  Receive Date: 20210106
  Receipt Date: 20210106
  Transmission Date: 20210419
  Serious: Yes (Other)
  Sender: FDA-Public Use
  Company Number: FR-FRESENIUS KABI-FK202100174

PATIENT
  Age: 51 Year
  Sex: Female

DRUGS (2)
  1. MEPIVACAINE (MANUFACTURER UNKNOWN) [Suspect]
     Active Substance: MEPIVACAINE HYDROCHLORIDE
     Indication: LOCAL ANAESTHESIA
     Dosage: ULTRASOUND?GUIDED WRIST BLOCK
     Route: 065
  2. ROPIVACAINE (MANUFACTURER UNKNOWN) [Suspect]
     Active Substance: ROPIVACAINE
     Indication: LOCAL ANAESTHESIA
     Dosage: ULTRASOUND?GUIDED WRIST BLOCK
     Route: 065

REACTIONS (4)
  - Loss of proprioception [Unknown]
  - Syncope [Unknown]
  - Tendon rupture [Unknown]
  - Fall [Unknown]
